FAERS Safety Report 23346646 (Version 4)
Quarter: 2024Q2

REPORT INFORMATION
  Report Type: Spontaneous
  Country: US (occurrence: US)
  Receive Date: 20231228
  Receipt Date: 20240509
  Transmission Date: 20240715
  Serious: Yes (Death)
  Sender: FDA-Public Use
  Company Number: US-002147023-NVSC2023US275273

PATIENT
  Sex: Male

DRUGS (1)
  1. TABRECTA [Suspect]
     Active Substance: CAPMATINIB
     Indication: Lung carcinoma cell type unspecified stage IV
     Dosage: 200 MG
     Route: 065

REACTIONS (5)
  - Death [Fatal]
  - Urinary tract infection [Unknown]
  - Dysphagia [Unknown]
  - Product use complaint [Unknown]
  - Wrong technique in product usage process [Unknown]
